FAERS Safety Report 9135591 (Version 1)
Quarter: 2013Q1

REPORT INFORMATION
  Report Type: Spontaneous
  Country: US (occurrence: US)
  Receive Date: 20130304
  Receipt Date: 20130304
  Transmission Date: 20140127
  Serious: No
  Sender: FDA-Public Use
  Company Number: US-ENDO PHARMACEUTICALS INC.-PERC20120181

PATIENT
  Sex: Female
  Weight: 63.56 kg

DRUGS (3)
  1. PERCOCET 10MG/325MG [Suspect]
     Indication: BREAKTHROUGH PAIN
     Dosage: 10/325 MG
     Route: 048
  2. OPANA ER 40MG [Concomitant]
     Indication: PAIN
     Route: 048
     Dates: start: 201207, end: 201208
  3. OPANA ER 40MG [Concomitant]
     Route: 048
     Dates: start: 201208

REACTIONS (2)
  - Tooth disorder [Not Recovered/Not Resolved]
  - Drug ineffective [Not Recovered/Not Resolved]
